FAERS Safety Report 9391013 (Version 1)
Quarter: 2013Q3

REPORT INFORMATION
  Report Type: Spontaneous
  Country: US (occurrence: None)
  Receive Date: 20130705
  Receipt Date: 20130705
  Transmission Date: 20140515
  Serious: Yes (Hospitalization)
  Sender: FDA-Public Use
  Company Number: None

PATIENT
  Age: 87 Year
  Sex: Female

DRUGS (2)
  1. APIXABAN [Suspect]
  2. DILTIAZEM [Suspect]

REACTIONS (11)
  - Drug interaction [None]
  - Balance disorder [None]
  - Speech disorder [None]
  - Blood pressure systolic increased [None]
  - Bradycardia [None]
  - Cardiac failure congestive [None]
  - Pulmonary hypertension [None]
  - Encephalopathy [None]
  - Hyponatraemia [None]
  - Compression fracture [None]
  - Fall [None]
